FAERS Safety Report 5059826-6 (Version None)
Quarter: 2006Q3

REPORT INFORMATION
  Report Type: 
  Country: None (occurrence: None)
  Receive Date: 20060724
  Receipt Date: 20060711
  Transmission Date: 20061208
  Serious: Yes (Other)
  Sender: FDA-Public Use
  Company Number: US-JNJFOC-20060702318

PATIENT
  Sex: Male

DRUGS (4)
  1. RISPERDAL [Suspect]
     Indication: BIPOLAR I DISORDER
     Route: 048
  2. WELLBUTRIN XL [Concomitant]
     Route: 048
  3. COGENTIN [Concomitant]
     Route: 048
  4. PLAQUENIL [Concomitant]
     Route: 048

REACTIONS (1)
  - AGRANULOCYTOSIS [None]
